FAERS Safety Report 5370165-6 (Version None)
Quarter: 2007Q2

REPORT INFORMATION
  Report Type: 
  Country: None (occurrence: None)
  Receive Date: 20070613
  Receipt Date: 20070402
  Transmission Date: 20071010
  Serious: No
  Sender: FDA-Public Use
  Company Number: IND-AE-07-SAN-014

PATIENT
  Age: 85 Year
  Sex: Male
  Weight: 97.5234 kg

DRUGS (9)
  1. SANCTURA [Suspect]
     Indication: HYPERTONIC BLADDER
     Dosage: 20MG - BID - ORAL
     Route: 048
     Dates: start: 20070317
  2. SANCTURA(R) (TROSPIUM CHLORIDE TALBETS) [Suspect]
  3. PROSCAR [Concomitant]
  4. ASPIRIN [Concomitant]
  5. ISOSORBIDE MONONITRATE [Concomitant]
  6. LISINOPRIL [Concomitant]
  7. ATENOLOL [Concomitant]
  8. FOLIC ACID [Concomitant]
  9. FLOMAX [Concomitant]

REACTIONS (3)
  - DRUG INEFFECTIVE [None]
  - DRY MOUTH [None]
  - POLLAKIURIA [None]
